FAERS Safety Report 4896654-6 (Version None)
Quarter: 2006Q1

REPORT INFORMATION
  Report Type: 
  Country: None (occurrence: None)
  Receive Date: 20060131
  Receipt Date: 20060123
  Transmission Date: 20060701
  Serious: Yes (Other)
  Sender: FDA-Public Use
  Company Number: US-ROCHE-433371

PATIENT
  Age: 52 Year
  Sex: Male

DRUGS (2)
  1. PEGASYS [Suspect]
     Dosage: ROUTE = INJ
     Route: 050
     Dates: start: 20051107
  2. COPEGUS [Suspect]
     Route: 048
     Dates: start: 20051107

REACTIONS (1)
  - BREAST MASS [None]
